FAERS Safety Report 6496336-3 (Version None)
Quarter: 2009Q4

REPORT INFORMATION
  Report Type: 
  Country: None (occurrence: None)
  Receive Date: 20091214
  Receipt Date: 20091201
  Transmission Date: 20100525
  Serious: Yes (Death)
  Sender: FDA-Public Use
  Company Number: PL-ROCHE-668718

PATIENT
  Sex: Female
  Weight: 55 kg

DRUGS (4)
  1. AVASTIN [Suspect]
     Indication: ADENOCARCINOMA
     Route: 042
     Dates: start: 20071213, end: 20090205
  2. AVASTIN [Suspect]
     Dosage: LAST ADMINISTARTION OF BEVACIZUMAB ON 05 FEBRUARY 2009.
     Route: 042
  3. CISPLATIN [Concomitant]
     Route: 042
     Dates: start: 20071213, end: 20080327
  4. GEMCITABINE [Concomitant]
     Dosage: FREQUENCY REPORTED AS 1ST AND 8TH EVERY 21 DAY.
     Route: 042
     Dates: start: 20071213, end: 20080327

REACTIONS (1)
  - DEATH [None]
